FAERS Safety Report 9723425 (Version 2)
Quarter: 2013Q4

REPORT INFORMATION
  Report Type: Spontaneous
  Country: US (occurrence: US)
  Receive Date: 20131202
  Receipt Date: 20131204
  Transmission Date: 20140711
  Serious: Yes (Other)
  Sender: FDA-Public Use
  Company Number: US-PFIZER INC-2013342325

PATIENT
  Age: 73 Year
  Sex: Male
  Weight: 99.77 kg

DRUGS (5)
  1. LYRICA [Suspect]
     Indication: NEURALGIA
     Dosage: 50 MG, DAILY
     Dates: start: 200703
  2. LYRICA [Suspect]
     Indication: PROCEDURAL PAIN
     Dosage: 100 MG, DAILY
  3. LYRICA [Suspect]
     Indication: NEURALGIA
     Dosage: 150 MG, DAILY
     Dates: end: 201002
  4. LYRICA [Suspect]
     Dosage: 150 MG, DAILY
     Dates: start: 201007
  5. VERAPAMIL [Concomitant]
     Indication: HYPERTENSION
     Dosage: UNK, 2X/DAY

REACTIONS (5)
  - Off label use [Unknown]
  - Intentional drug misuse [Unknown]
  - Skin fissures [Recovering/Resolving]
  - Wound haemorrhage [Recovering/Resolving]
  - Neuralgia [Recovered/Resolved]
